FAERS Safety Report 16240182 (Version 4)
Quarter: 2020Q1

REPORT INFORMATION
  Report Type: Report from Study
  Country: JP (occurrence: JP)
  Receive Date: 20190425
  Receipt Date: 20200226
  Transmission Date: 20200409
  Serious: Yes (Hospitalization)
  Sender: FDA-Public Use
  Company Number: JP-EISAI MEDICAL RESEARCH-EC-2019-055576

PATIENT
  Age: 77 Year
  Sex: Male
  Weight: 55 kg

DRUGS (24)
  1. AMLODIPINE [Concomitant]
     Active Substance: AMLODIPINE BESYLATE
  2. AZOSEMIDE [Concomitant]
     Active Substance: AZOSEMIDE
  3. SENNOSIDE [Concomitant]
     Active Substance: SENNOSIDES
  4. MITOMYCIN C [Concomitant]
     Active Substance: MITOMYCIN
  5. LENVATINIB [Suspect]
     Active Substance: LENVATINIB
     Route: 048
     Dates: start: 20190319, end: 20190414
  6. L-CARBOCISTEINE [Concomitant]
     Active Substance: CARBOCYSTEINE
  7. THYRADIN S [Concomitant]
     Active Substance: LEVOTHYROXINE SODIUM
  8. TOFRANIL [Concomitant]
     Active Substance: IMIPRAMINE HYDROCHLORIDE
  9. XYZAL [Concomitant]
     Active Substance: LEVOCETIRIZINE DIHYDROCHLORIDE
  10. LENVATINIB [Suspect]
     Active Substance: LENVATINIB
     Route: 048
     Dates: start: 20190415, end: 20190419
  11. LENVATINIB [Suspect]
     Active Substance: LENVATINIB
     Route: 048
     Dates: start: 20190528
  12. NICORANDIL [Concomitant]
     Active Substance: NICORANDIL
  13. RYZODEG 70/30 [Concomitant]
     Active Substance: INSULIN ASPART\INSULIN DEGLUDEC
  14. BELSOMRA [Concomitant]
     Active Substance: SUVOREXANT
  15. LENVATINIB [Suspect]
     Active Substance: LENVATINIB
     Route: 048
     Dates: start: 20190527, end: 20190527
  16. BETANIS [Concomitant]
     Active Substance: MIRABEGRON
  17. NAFTOPIDIL [Concomitant]
     Active Substance: NAFTOPIDIL
  18. TSUMURA RIKKUNSHITO EXTRACT GRANULES FOR ETHICAL USE [Concomitant]
     Active Substance: HERBALS
  19. BETAMETHASONE. [Concomitant]
     Active Substance: BETAMETHASONE
  20. LENVATINIB [Suspect]
     Active Substance: LENVATINIB
     Indication: HEPATOCELLULAR CARCINOMA
     Route: 048
     Dates: start: 20190227, end: 20190312
  21. BISOPROLOL FUMARATE. [Concomitant]
     Active Substance: BISOPROLOL FUMARATE
  22. LIXIANA OD [Concomitant]
     Active Substance: EDOXABAN TOSYLATE
  23. LENVATINIB [Suspect]
     Active Substance: LENVATINIB
     Route: 048
     Dates: start: 20190513, end: 20190526
  24. TAKECAB [Concomitant]
     Active Substance: VONOPRAZAN FUMURATE

REACTIONS (2)
  - Hepatic encephalopathy [Recovering/Resolving]
  - Acute respiratory distress syndrome [Not Recovered/Not Resolved]

NARRATIVE: CASE EVENT DATE: 20190420
